FAERS Safety Report 5008696-0 (Version None)
Quarter: 2006Q2

REPORT INFORMATION
  Report Type: 
  Country: None (occurrence: None)
  Receive Date: 20060523
  Receipt Date: 20060428
  Transmission Date: 20061013
  Serious: Yes (Hospitalization)
  Sender: FDA-Public Use
  Company Number: AU-SANOFI-SYNTHELABO-F01200601144

PATIENT
  Sex: Male
  Weight: 60.8 kg

DRUGS (3)
  1. RADIOTHERAPY [Concomitant]
  2. OXALIPLATIN [Suspect]
     Indication: OESOPHAGEAL CARCINOMA
     Route: 042
     Dates: start: 20060417, end: 20060417
  3. FLUOROURACIL [Suspect]
     Indication: OESOPHAGEAL CARCINOMA
     Route: 042
     Dates: start: 20060417, end: 20060417

REACTIONS (10)
  - ATRIAL FIBRILLATION [None]
  - BUNDLE BRANCH BLOCK LEFT [None]
  - CARDIAC DISORDER [None]
  - CHEST PAIN [None]
  - DEHYDRATION [None]
  - DIZZINESS [None]
  - HEART RATE INCREASED [None]
  - NAUSEA [None]
  - VISION BLURRED [None]
  - VOMITING [None]
